FAERS Safety Report 4600906-4 (Version None)
Quarter: 2005Q1

REPORT INFORMATION
  Report Type: 
  Country: None (occurrence: None)
  Receive Date: 20050127
  Receipt Date: 20041102
  Transmission Date: 20050727
  Serious: No
  Sender: FDA-Public Use
  Company Number: USA041182916

PATIENT
  Age: 6 Year
  Sex: Male
  Weight: 22 kg

DRUGS (2)
  1. STRATTERA [Suspect]
     Indication: ATTENTION DEFICIT/HYPERACTIVITY DISORDER
     Dosage: 40 MG
     Dates: start: 20041015
  2. METADATE CD [Concomitant]

REACTIONS (4)
  - EXCITABILITY [None]
  - INSOMNIA [None]
  - OBSESSIVE-COMPULSIVE PERSONALITY DISORDER [None]
  - TENSION [None]
